FAERS Safety Report 8193837-7 (Version None)
Quarter: 2012Q1

REPORT INFORMATION
  Report Type: 
  Country: None (occurrence: None)
  Receive Date: 20120308
  Receipt Date: 20120222
  Transmission Date: 20120608
  Serious: Yes (Other)
  Sender: FDA-Public Use
  Company Number: PT-BAYER-2012-022560

PATIENT
  Age: 70 Year
  Sex: Female
  Weight: 64 kg

DRUGS (1)
  1. NAPROXEN SODIUM [Suspect]
     Route: 048

REACTIONS (4)
  - DYSPNOEA [None]
  - STRIDOR [None]
  - ERYTHEMA NODOSUM [None]
  - ANGIOEDEMA [None]
